FAERS Safety Report 4646932-0 (Version None)
Quarter: 2005Q2

REPORT INFORMATION
  Report Type: 
  Country: None (occurrence: None)
  Receive Date: 20050331
  Receipt Date: 20050214
  Transmission Date: 20051028
  Serious: No
  Sender: FDA-Public Use
  Company Number: 05P-163-0290616-00

PATIENT
  Age: 75 Year
  Sex: Female
  Weight: 74.3899 kg

DRUGS (6)
  1. HUMIRA [Suspect]
     Indication: RHEUMATOID ARTHRITIS
     Dosage: 40 MG, 1 IN 2 WK, SUBCUTANEOUS
     Route: 058
     Dates: start: 20050125, end: 20050215
  2. BUCINDOLOL HYDROCHLORIDE [Concomitant]
  3. SERTRALINE HYDROCHLORIDE [Concomitant]
  4. LORAZEPAM [Concomitant]
  5. TRAMIDOL [Concomitant]
  6. CALCIUM GLUCONATE [Concomitant]

REACTIONS (4)
  - ARTHRALGIA [None]
  - FATIGUE [None]
  - MOOD ALTERED [None]
  - PALPITATIONS [None]
